FAERS Safety Report 25928092 (Version 2)
Quarter: 2025Q4

REPORT INFORMATION
  Report Type: Spontaneous
  Country: JP (occurrence: JP)
  Receive Date: 20251016
  Receipt Date: 20251023
  Transmission Date: 20260118
  Serious: Yes (Other)
  Sender: TAKEDA
  Company Number: JP-TAKEDA-2025TJP010353

PATIENT
  Age: 92 Year
  Sex: Female

DRUGS (1)
  1. ROZEREM [Suspect]
     Active Substance: RAMELTEON
     Indication: Product used for unknown indication
     Dosage: 8 MILLIGRAM

REACTIONS (1)
  - Renal impairment [Unknown]
